FAERS Safety Report 19040945 (Version 2)
Quarter: 2021Q2

REPORT INFORMATION
  Report Type: Spontaneous
  Country: AT (occurrence: AT)
  Receive Date: 20210322
  Receipt Date: 20210408
  Transmission Date: 20210717
  Serious: Yes (Hospitalization, Other)
  Sender: FDA-Public Use
  Company Number: AT-SAMSUNG BIOEPIS-SB-2021-06800

PATIENT
  Age: 65 Year
  Sex: Female
  Weight: 112 kg

DRUGS (2)
  1. BENEPALI [Suspect]
     Active Substance: ETANERCEPT
     Indication: PSORIATIC ARTHROPATHY
     Dosage: UNKNOWN
     Route: 065
  2. BENEPALI [Suspect]
     Active Substance: ETANERCEPT
     Route: 065
     Dates: start: 201909

REACTIONS (1)
  - Pulmonary embolism [Recovered/Resolved]

NARRATIVE: CASE EVENT DATE: 20210114
